FAERS Safety Report 7987946-2 (Version None)
Quarter: 2011Q4

REPORT INFORMATION
  Report Type: 
  Country: None (occurrence: None)
  Receive Date: 20111216
  Receipt Date: 20110512
  Transmission Date: 20120403
  Serious: Yes (Life-Threatening)
  Sender: FDA-Public Use
  Company Number: US-BRISTOL-MYERS SQUIBB COMPANY-15741101

PATIENT
  Age: 47 Year
  Sex: Female

DRUGS (5)
  1. CITALOPRAM [Concomitant]
  2. LITHIUM CARBONATE [Concomitant]
  3. ABILIFY [Suspect]
     Dosage: INITIAL 5MG, INCREASED TO 15MG
     Dates: start: 20110316, end: 20110511
  4. SEROQUEL [Concomitant]
     Dosage: SEROQUEL XR
  5. ATIVAN [Concomitant]

REACTIONS (2)
  - SUICIDAL IDEATION [None]
  - GAIT DISTURBANCE [None]
